FAERS Safety Report 6265221-4 (Version None)
Quarter: 2009Q3

REPORT INFORMATION
  Report Type: 
  Country: None (occurrence: None)
  Receive Date: 20090713
  Receipt Date: 20090707
  Transmission Date: 20100115
  Serious: Yes (Life-Threatening, Hospitalization)
  Sender: FDA-Public Use
  Company Number: AT-ROCHE-555004

PATIENT
  Sex: Male
  Weight: 68 kg

DRUGS (2)
  1. CAPECITABINE [Suspect]
     Indication: COLON CANCER
     Dosage: DOSE REPORTED AS: 2.500.
     Route: 048
     Dates: start: 20080107
  2. BEVACIZUMAB [Suspect]
     Indication: COLON CANCER
     Dosage: DOSE REPORTED AS: 547.5 MG; DOSAGE FORM: INFUSION.
     Route: 042
     Dates: start: 20080107

REACTIONS (3)
  - COLONIC FISTULA [None]
  - GASTROINTESTINAL NECROSIS [None]
  - SEPSIS [None]
